FAERS Safety Report 10182204 (Version 2)
Quarter: 2014Q2

REPORT INFORMATION
  Report Type: Spontaneous
  Country: SE (occurrence: SE)
  Receive Date: 20140520
  Receipt Date: 20140612
  Transmission Date: 20141212
  Serious: Yes (Disabling)
  Sender: FDA-Public Use
  Company Number: SE-ROCHE-1403627

PATIENT
  Age: 81 Year
  Sex: Male
  Weight: 100.11 kg

DRUGS (7)
  1. RANIBIZUMAB [Suspect]
     Indication: AGE-RELATED MACULAR DEGENERATION
     Route: 050
  2. RANIBIZUMAB [Suspect]
     Dosage: 10 MG/ML
     Route: 050
     Dates: start: 20140513
  3. TRIATEC (RAMIPRIL) [Concomitant]
  4. ASA [Concomitant]
  5. SIMVASTATIN [Concomitant]
  6. INSULATARD [Concomitant]
  7. METFORMIN [Concomitant]

REACTIONS (3)
  - Sudden visual loss [Recovered/Resolved]
  - Visual acuity reduced [Unknown]
  - Corneal erosion [Unknown]
